FAERS Safety Report 9656275 (Version 4)
Quarter: 2013Q4

REPORT INFORMATION
  Report Type: Report from Study
  Country: CA (occurrence: CA)
  Receive Date: 20131030
  Receipt Date: 20131129
  Transmission Date: 20140711
  Serious: Yes (Other)
  Sender: FDA-Public Use
  Company Number: CA-ROCHE-1178534

PATIENT
  Age: 80 Year
  Sex: Female
  Weight: 68 kg

DRUGS (16)
  1. RITUXAN [Suspect]
     Indication: RHEUMATOID ARTHRITIS
     Route: 042
     Dates: start: 20090305
  2. RITUXAN [Suspect]
     Route: 042
     Dates: start: 20090523
  3. RITUXAN [Suspect]
     Dosage: RESTARTED
     Route: 065
     Dates: start: 201206
  4. RITUXAN [Suspect]
     Route: 065
     Dates: start: 20130404
  5. NITROFURANTOIN [Suspect]
     Indication: LOCALISED INFECTION
     Route: 042
     Dates: start: 20130711, end: 201307
  6. MOXIFLOXACIN [Suspect]
     Indication: LOCALISED INFECTION
     Route: 042
     Dates: start: 20130711, end: 201307
  7. ARAVA [Concomitant]
  8. THYROXINE [Concomitant]
  9. HYDROCHLOROTHIAZIDE [Concomitant]
  10. ACTONEL [Concomitant]
  11. TYLENOL EXTRA STRENGTH [Concomitant]
  12. TYLENOL ARTHRITIS [Concomitant]
  13. TYLENOL #3 (CANADA) [Concomitant]
  14. DIPHENHYDRAMINE HCL [Concomitant]
     Indication: PREMEDICATION
     Route: 048
     Dates: start: 20120625
  15. ACETAMINOPHEN [Concomitant]
     Indication: PREMEDICATION
     Route: 048
     Dates: start: 20120625
  16. METHYLPREDNISOLONE [Concomitant]
     Indication: PREMEDICATION
     Route: 042
     Dates: start: 20120625

REACTIONS (11)
  - Localised infection [Recovered/Resolved]
  - Memory impairment [Unknown]
  - Cellulitis [Unknown]
  - Spinal osteoarthritis [Unknown]
  - Tooth abscess [Recovered/Resolved]
  - Eye infection [Not Recovered/Not Resolved]
  - Eye pruritus [Not Recovered/Not Resolved]
  - Intraocular pressure increased [Unknown]
  - Hypersensitivity [Unknown]
  - Rheumatoid arthritis [Not Recovered/Not Resolved]
  - Blood pressure increased [Recovered/Resolved]
